FAERS Safety Report 7024207-2 (Version None)
Quarter: 2010Q4

REPORT INFORMATION
  Report Type: 
  Country: None (occurrence: None)
  Receive Date: 20101001
  Receipt Date: 20100929
  Transmission Date: 20110411
  Serious: Yes (Hospitalization)
  Sender: FDA-Public Use
  Company Number: NL-BRISTOL-MYERS SQUIBB COMPANY-15112980

PATIENT
  Age: 58 Year
  Sex: Male

DRUGS (5)
  1. CETUXIMAB [Suspect]
     Indication: NON-SMALL CELL LUNG CANCER
     Dosage: LAST TREATMENT ON:29APR2010 CUMULATIVE DOSE 2605MG
     Route: 042
     Dates: start: 20100401
  2. CISPLATIN [Suspect]
     Indication: NON-SMALL CELL LUNG CANCER
     Dosage: CUMULATIVE DOSE 110MG
     Route: 042
     Dates: start: 20100409, end: 20100422
  3. DEXAMETHASONE [Concomitant]
     Dates: start: 20100422
  4. TEMESTA [Concomitant]
     Dates: start: 20100422
  5. EMEND [Concomitant]
     Dates: start: 20100422

REACTIONS (3)
  - DECREASED APPETITE [None]
  - NAUSEA [None]
  - PNEUMONIA [None]
